FAERS Safety Report 19347177 (Version 4)
Quarter: 2021Q2

REPORT INFORMATION
  Report Type: Spontaneous
  Country: DK (occurrence: DK)
  Receive Date: 20210531
  Receipt Date: 20210623
  Transmission Date: 20210717
  Serious: Yes (Other)
  Sender: FDA-Public Use
  Company Number: DK-CELLTRION INC.-2021DK007117

PATIENT

DRUGS (2)
  1. RITUXIMAB (UNKNOWN) [Suspect]
     Active Substance: RITUXIMAB
     Indication: IMMUNOSUPPRESSANT DRUG THERAPY
     Dosage: 1000 MG (EVERY 6 MONTHS) PHARMACEUTICAL DOSAGE FORM: UNKNOWN
     Route: 065
     Dates: start: 2010, end: 201806
  2. RITUXIMAB (UNKNOWN) [Suspect]
     Active Substance: RITUXIMAB
     Indication: RHEUMATOID ARTHRITIS
     Dosage: 1000 MG X 2 EVERY 6 MONTHS
     Route: 065
     Dates: start: 2010, end: 201806

REACTIONS (4)
  - Mycoplasma infection [Unknown]
  - Hypogammaglobulinaemia [Unknown]
  - Urinary tract infection [Unknown]
  - Arthritis bacterial [Unknown]
